FAERS Safety Report 8319975-3 (Version None)
Quarter: 2012Q2

REPORT INFORMATION
  Report Type: 
  Country: None (occurrence: None)
  Receive Date: 20120427
  Receipt Date: 20120416
  Transmission Date: 20120825
  Serious: Yes (Hospitalization)
  Sender: FDA-Public Use
  Company Number: FR-ROCHE-767977

PATIENT
  Sex: Female
  Weight: 59 kg

DRUGS (16)
  1. EVEROLIMUS [Suspect]
     Indication: RENAL TRANSPLANT
     Route: 048
  2. PANTOPRAZOLE SODIUM [Concomitant]
  3. PREDNISONE [Suspect]
     Route: 048
  4. NEBIVOLOL HCL [Concomitant]
  5. EVEROLIMUS [Suspect]
     Route: 048
  6. MYCOPHENOLATE MOFETIL (CELLCEPT) [Suspect]
     Indication: RENAL TRANSPLANT
     Route: 048
  7. NOVORAPID [Concomitant]
     Dosage: 34 UNITS DAIILY
  8. MYCOPHENOLATE MOFETIL (CELLCEPT) [Suspect]
     Dosage: DOSE REDUCED
     Route: 048
  9. PREDNISONE [Suspect]
     Dosage: DOSE INCREASED
     Route: 048
  10. LANTUS [Concomitant]
     Dosage: 16 UNITS DAILY
  11. MYCOPHENOLATE MOFETIL (CELLCEPT) [Suspect]
     Route: 048
  12. PREDNISONE [Suspect]
     Indication: RENAL TRANSPLANT
     Route: 048
  13. AMLODIPINE BESYLATE [Concomitant]
  14. SODIUM BICARBONATE [Concomitant]
     Dates: start: 20101102, end: 20110217
  15. EPREX [Concomitant]
     Dosage: WEEKLY
  16. CLORAZEPATE DIPOTASSIUM [Concomitant]

REACTIONS (2)
  - DEEP VEIN THROMBOSIS [None]
  - PULMONARY EMBOLISM [None]
